FAERS Safety Report 8123478-9 (Version None)
Quarter: 2012Q1

REPORT INFORMATION
  Report Type: 
  Country: None (occurrence: None)
  Receive Date: 20120208
  Receipt Date: 20120131
  Transmission Date: 20120608
  Serious: Yes (Other)
  Sender: FDA-Public Use
  Company Number: PHHY2012JP008876

PATIENT
  Sex: Male

DRUGS (3)
  1. EPLERENONE [Concomitant]
     Route: 048
  2. ADALAT [Concomitant]
     Route: 048
  3. DIOVAN [Suspect]
     Indication: HYPERTENSION
     Route: 048

REACTIONS (2)
  - ALLERGIC BRONCHITIS [None]
  - COUGH [None]
